FAERS Safety Report 8300267 (Version 2)
Quarter: 2012Q4

REPORT INFORMATION
  Report Type: 
  Country: US (occurrence: US)
  Receive Date: 20111219
  Receipt Date: 20120928
  Transmission Date: 20130627
  Serious: No
  Sender: FDA-Public Use
  Company Number: US-ASTRAZENECA-2010SE56571

PATIENT
  Age: 66 Year
  Sex: Female

DRUGS (3)
  1. CRESTOR [Suspect]
     Route: 048
  2. SYMBICORT PMDI [Suspect]
     Dosage: 160/4.5 MCG, FREQUENCY UNKNOWN
     Route: 055
  3. NEXIUM [Suspect]
     Route: 048

REACTIONS (4)
  - Asthma [Unknown]
  - Hypercholesterolaemia [Unknown]
  - Lung infection [Unknown]
  - Drug dose omission [Unknown]
